FAERS Safety Report 9835163 (Version 1)
Quarter: 2014Q1

REPORT INFORMATION
  Report Type: Spontaneous
  Country: US (occurrence: US)
  Receive Date: 20140122
  Receipt Date: 20140122
  Transmission Date: 20141002
  Serious: Yes (Other)
  Sender: FDA-Public Use
  Company Number: US-BRISTOL-MYERS SQUIBB COMPANY-19836816

PATIENT
  Age: 67 Year
  Sex: Male
  Weight: 87.07 kg

DRUGS (6)
  1. ELIQUIS [Suspect]
     Dates: start: 201304
  2. BABY ASPIRIN [Suspect]
  3. FUROSEMIDE [Concomitant]
     Dosage: TAKEN IN THE MORNING.
  4. ATENOLOL [Concomitant]
  5. DIGOXIN [Concomitant]
  6. ALLOPURINOL [Concomitant]

REACTIONS (2)
  - Epistaxis [Unknown]
  - Headache [Unknown]
